FAERS Safety Report 13023936 (Version 1)
Quarter: 2016Q4

REPORT INFORMATION
  Report Type: Spontaneous
  Country: GR (occurrence: GR)
  Receive Date: 20161213
  Receipt Date: 20161213
  Transmission Date: 20170207
  Serious: Yes (Hospitalization)
  Sender: FDA-Public Use
  Company Number: GR-US WORLDMEDS, LLC-USW201612-000857

PATIENT
  Age: 63 Year
  Sex: Female

DRUGS (10)
  1. UNIMAZOLE [Concomitant]
  2. SYMMETREL [Concomitant]
     Active Substance: AMANTADINE HYDROCHLORIDE
  3. TROFOCARD [Concomitant]
  4. APOMORPHINE HYDROCHLORIDE [Suspect]
     Active Substance: APOMORPHINE HYDROCHLORIDE
     Indication: PARKINSON^S DISEASE
     Dates: start: 201606
  5. FRUMIL [Concomitant]
     Active Substance: AMILORIDE HYDROCHLORIDE\FUROSEMIDE
  6. MADOPAR [Concomitant]
     Active Substance: BENSERAZIDE HYDROCHLORIDE\LEVODOPA
  7. CONCOR [Concomitant]
     Active Substance: BISOPROLOL FUMARATE
  8. EMAFER [Concomitant]
  9. IRAPEXIN [Concomitant]
  10. SINTROM [Concomitant]
     Active Substance: ACENOCOUMAROL

REACTIONS (2)
  - Ileus [Recovered/Resolved]
  - Flatulence [Recovered/Resolved]
